FAERS Safety Report 22660022 (Version 1)
Quarter: 2023Q2

REPORT INFORMATION
  Report Type: Spontaneous
  Country: US (occurrence: US)
  Receive Date: 20230630
  Receipt Date: 20230630
  Transmission Date: 20230721
  Serious: No
  Sender: FDA-Public Use
  Company Number: US-PFIZER INC-202300236193

PATIENT
  Age: 86 Year
  Sex: Male

DRUGS (2)
  1. INLYTA [Suspect]
     Active Substance: AXITINIB
     Dosage: 5 MG, 1X/DAY
     Dates: start: 202103
  2. KEYTRUDA [Suspect]
     Active Substance: PEMBROLIZUMAB

REACTIONS (1)
  - Neoplasm progression [Not Recovered/Not Resolved]
